FAERS Safety Report 5117151-9 (Version None)
Quarter: 2006Q3

REPORT INFORMATION
  Report Type: 
  Country: None (occurrence: None)
  Receive Date: 20060927
  Receipt Date: 20060927
  Transmission Date: 20061208
  Serious: No
  Sender: FDA-Public Use
  Company Number: None

PATIENT
  Age: 26 Year
  Sex: Female
  Weight: 62.5964 kg

DRUGS (2)
  1. SCOPOLAMINE [Suspect]
     Indication: EAR INFECTION
     Dosage: 1.5MG 1 EVERY 3 DAYS
     Dates: start: 20060922, end: 20060925
  2. SCOPOLAMINE [Suspect]
     Indication: VERTIGO
     Dosage: 1.5MG 1 EVERY 3 DAYS
     Dates: start: 20060922, end: 20060925

REACTIONS (11)
  - DEPRESSED LEVEL OF CONSCIOUSNESS [None]
  - DIZZINESS [None]
  - FATIGUE [None]
  - FEELING ABNORMAL [None]
  - HALLUCINATION [None]
  - HEART RATE IRREGULAR [None]
  - INSOMNIA [None]
  - NAUSEA [None]
  - RESTLESSNESS [None]
  - SYNCOPE [None]
  - VISION BLURRED [None]
